FAERS Safety Report 5430982-0 (Version None)
Quarter: 2007Q3

REPORT INFORMATION
  Report Type: 
  Country: None (occurrence: None)
  Receive Date: 20070830
  Receipt Date: 20070820
  Transmission Date: 20080115
  Serious: Yes (Other)
  Sender: FDA-Public Use
  Company Number: B0420221A

PATIENT
  Age: 56 Year
  Sex: Female
  Weight: 50 kg

DRUGS (8)
  1. REQUIP [Suspect]
     Indication: PARKINSON'S DISEASE
     Route: 048
     Dates: start: 20051101
  2. ESTREVA [Concomitant]
     Indication: HORMONE REPLACEMENT THERAPY
     Route: 061
     Dates: start: 19990101, end: 20070401
  3. FOSAMAX [Concomitant]
     Indication: OSTEOPOROSIS
     Dosage: 1TAB WEEKLY
     Route: 048
     Dates: start: 20030101, end: 20070401
  4. UTROGESTAN [Concomitant]
     Indication: HORMONE REPLACEMENT THERAPY
     Dosage: 200MG CYCLIC
     Route: 048
     Dates: start: 19990101, end: 20070401
  5. ESTROGEN [Concomitant]
     Indication: HORMONE REPLACEMENT THERAPY
     Route: 048
     Dates: end: 20070401
  6. OROCAL D3 [Concomitant]
     Dosage: 500MG PER DAY
     Route: 048
     Dates: end: 20070401
  7. TOCO 500 [Concomitant]
     Dosage: 500MG PER DAY
     Route: 050
     Dates: end: 20070401
  8. KARDEGIC [Concomitant]
     Dosage: 75MG THREE TIMES PER DAY
     Route: 065
     Dates: end: 20070401

REACTIONS (9)
  - ABDOMINAL DISTENSION [None]
  - ALANINE AMINOTRANSFERASE INCREASED [None]
  - ASPARTATE AMINOTRANSFERASE INCREASED [None]
  - HEPATOCELLULAR DAMAGE [None]
  - INSOMNIA [None]
  - NAUSEA [None]
  - SOMNOLENCE [None]
  - SUDDEN ONSET OF SLEEP [None]
  - YAWNING [None]
